FAERS Safety Report 6683546-5 (Version None)
Quarter: 2010Q2

REPORT INFORMATION
  Report Type: 
  Country: None (occurrence: None)
  Receive Date: 20100413
  Receipt Date: 20100331
  Transmission Date: 20101027
  Serious: Yes (Hospitalization)
  Sender: FDA-Public Use
  Company Number: IT-2010-0710

PATIENT
  Age: 73 Year
  Sex: Male

DRUGS (2)
  1. NAVELBINE [Suspect]
  2. PLATINEX [Suspect]

REACTIONS (3)
  - ASTHENIA [None]
  - DEHYDRATION [None]
  - RENAL FAILURE ACUTE [None]
